FAERS Safety Report 9822552 (Version 3)
Quarter: 2015Q4

REPORT INFORMATION
  Report Type: Report from Study
  Country: US (occurrence: US)
  Receive Date: 20140116
  Receipt Date: 20151016
  Transmission Date: 20160305
  Serious: Yes (Hospitalization)
  Sender: FDA-Public Use
  Company Number: US-ROCHE-1332355

PATIENT
  Sex: Female
  Weight: 111 kg

DRUGS (7)
  1. XOLAIR [Suspect]
     Active Substance: OMALIZUMAB
     Indication: RHINITIS ALLERGIC
     Dosage: 12 REFILLS
     Route: 058
     Dates: start: 20131212
  2. XOLAIR [Suspect]
     Active Substance: OMALIZUMAB
     Indication: ASTHMA
  3. SYMBICORT [Concomitant]
     Active Substance: BUDESONIDE\FORMOTEROL FUMARATE DIHYDRATE
     Route: 065
  4. BACTRIM [Concomitant]
     Active Substance: SULFAMETHOXAZOLE\TRIMETHOPRIM
     Dosage: 800 MG TO 160 MG PER TABLET
     Route: 048
     Dates: start: 20131212, end: 20131226
  5. PREDNISONE. [Concomitant]
     Active Substance: PREDNISONE
     Route: 048
  6. PREDNISONE. [Concomitant]
     Active Substance: PREDNISONE
     Route: 048
     Dates: start: 20131212
  7. XOLAIR [Suspect]
     Active Substance: OMALIZUMAB
     Indication: PERIPHERAL VASCULAR DISORDER
     Route: 058

REACTIONS (10)
  - Upper-airway cough syndrome [Unknown]
  - Arthralgia [Unknown]
  - Dyspnoea [Unknown]
  - Acute sinusitis [Unknown]
  - Joint swelling [Unknown]
  - Hypersensitivity [Unknown]
  - Facial pain [Unknown]
  - Ear disorder [Unknown]
  - Asthma [Unknown]
  - Productive cough [Unknown]
